FAERS Safety Report 5538312-0 (Version None)
Quarter: 2007Q4

REPORT INFORMATION
  Report Type: 
  Country: None (occurrence: None)
  Receive Date: 20071205
  Receipt Date: 20071128
  Transmission Date: 20080405
  Serious: Yes (Other)
  Sender: FDA-Public Use
  Company Number: S06-USA-05377-01

PATIENT
  Age: 67 Year
  Sex: Female

DRUGS (5)
  1. THYROID TAB [Suspect]
     Indication: HYPOTHYROIDISM
     Dosage: 90 MG QAM PO
     Route: 048
     Dates: end: 20070101
  2. THYROID TAB [Suspect]
     Indication: HYPOTHYROIDISM
     Dosage: 60 MG QHS PO
     Route: 048
     Dates: end: 20070101
  3. THYROID TAB [Suspect]
     Indication: HYPOTHYROIDISM
     Dosage: 60 MG BID PO
     Route: 048
     Dates: start: 20070101
  4. VITAMINS NOS [Concomitant]
  5. CALCITRIOL [Concomitant]

REACTIONS (7)
  - BLOOD THYROID STIMULATING HORMONE ABNORMAL [None]
  - DRY MOUTH [None]
  - DRY THROAT [None]
  - DYSGEUSIA [None]
  - LARYNGOSPASM [None]
  - MUSCLE SPASMS [None]
  - PHARYNGOLARYNGEAL PAIN [None]
